FAERS Safety Report 21136988 (Version 1)
Quarter: 2022Q3

REPORT INFORMATION
  Report Type: Spontaneous
  Country: US (occurrence: None)
  Receive Date: 20220727
  Receipt Date: 20220727
  Transmission Date: 20221027
  Serious: Yes (Hospitalization)
  Sender: FDA-Public Use
  Company Number: None

PATIENT
  Age: 21 Year
  Sex: Female
  Weight: 92.4 kg

DRUGS (8)
  1. METHOTREXATE [Suspect]
     Active Substance: METHOTREXATE
     Dates: end: 20220719
  2. CYTARABINE [Suspect]
     Active Substance: CYTARABINE
     Dates: end: 20220720
  3. CYCLOPHOSPHAMIDE [Suspect]
     Active Substance: CYCLOPHOSPHAMIDE
     Dates: end: 20200712
  4. DAUNORUBICIN [Suspect]
     Active Substance: DAUNORUBICIN
     Dates: end: 20220628
  5. MERCAPTOPURINE [Suspect]
     Active Substance: MERCAPTOPURINE
     Dates: end: 20220721
  6. ONCASPAR [Suspect]
     Active Substance: PEGASPARGASE
     Indication: Drug therapy
     Dates: end: 20220610
  7. PREDNISOLONE [Suspect]
     Active Substance: PREDNISOLONE
     Indication: Drug therapy
     Dates: end: 20220628
  8. VINCRISTINE SULFATE [Suspect]
     Active Substance: VINCRISTINE SULFATE
     Dates: end: 20220628

REACTIONS (4)
  - Dysarthria [None]
  - Encephalopathy [None]
  - Leukoencephalopathy [None]
  - Aphasia [None]

NARRATIVE: CASE EVENT DATE: 20220721
